FAERS Safety Report 11278940 (Version 1)
Quarter: 2015Q3

REPORT INFORMATION
  Report Type: Spontaneous
  Country: IT (occurrence: None)
  Receive Date: 20150715
  Receipt Date: 20150715
  Transmission Date: 20151125
  Serious: Yes (Hospitalization)
  Sender: FDA-Public Use
  Company Number: 2015HINLIT0556

PATIENT
  Age: 78 Year
  Sex: Male

DRUGS (1)
  1. LEVETIRACTAM [Suspect]
     Active Substance: LEVETIRACETAM
     Indication: EPILEPSY
     Route: 048

REACTIONS (9)
  - Hypertransaminasaemia [None]
  - Anticonvulsant drug level above therapeutic [None]
  - Weight decreased [None]
  - Asthenia [None]
  - Gamma-glutamyltransferase increased [None]
  - Hypoproteinaemia [None]
  - Decreased appetite [None]
  - Glomerular filtration rate decreased [None]
  - Nausea [None]
